FAERS Safety Report 19818419 (Version 7)
Quarter: 2022Q1

REPORT INFORMATION
  Report Type: Report from Study
  Country: FR (occurrence: FR)
  Receive Date: 20210911
  Receipt Date: 20220314
  Transmission Date: 20220423
  Serious: Yes (Other)
  Sender: FDA-Public Use
  Company Number: FR-UCBSA-2021042682

PATIENT
  Age: 23 Year
  Sex: Female
  Weight: 76 kg

DRUGS (4)
  1. CERTOLIZUMAB PEGOL [Suspect]
     Active Substance: CERTOLIZUMAB PEGOL
     Indication: Psoriasis
     Dosage: 200 MILLIGRAM, EV 15 DAYS
     Route: 030
     Dates: end: 20220225
  2. NEOMOL [Concomitant]
     Indication: Product used for unknown indication
     Dosage: UNK
     Dates: start: 20190131, end: 20210413
  3. MICONAZOLE NITRATE [Concomitant]
     Active Substance: MICONAZOLE NITRATE
     Indication: Vulvovaginal mycotic infection
     Dosage: 300 MILLIGRAM, ONE TIME DOSE
     Route: 067
     Dates: start: 202105, end: 202105
  4. MICONAZOLE NITRATE [Concomitant]
     Active Substance: MICONAZOLE NITRATE
     Dosage: 300 MILLIGRAM, ONE TIME DOSE
     Route: 067
     Dates: start: 202105, end: 202105

REACTIONS (4)
  - Vulvovaginal mycotic infection [Recovered/Resolved]
  - Incorrect route of product administration [Unknown]
  - Maternal exposure during breast feeding [Unknown]
  - Maternal exposure during pregnancy [Unknown]

NARRATIVE: CASE EVENT DATE: 20210204
